FAERS Safety Report 13338506 (Version 1)
Quarter: 2017Q1

REPORT INFORMATION
  Report Type: Report from Study
  Country: CA (occurrence: CA)
  Receive Date: 20170315
  Receipt Date: 20170315
  Transmission Date: 20170428
  Serious: Yes (Hospitalization)
  Sender: FDA-Public Use
  Company Number: CA-HLSUS-2017-CA-000231

PATIENT
  Age: 49 Year
  Sex: Female

DRUGS (2)
  1. CLOZARIL [Suspect]
     Active Substance: CLOZAPINE
     Route: 048
     Dates: start: 20001215
  2. SERTRALINE [Concomitant]
     Active Substance: SERTRALINE HYDROCHLORIDE
     Dosage: 200 MG TWICE DAILY

REACTIONS (6)
  - Cerumen impaction [Unknown]
  - Hypothyroidism [Unknown]
  - Psychiatric decompensation [Unknown]
  - Psychotic disorder [Unknown]
  - Dyslipidaemia [Unknown]
  - Constipation [Unknown]

NARRATIVE: CASE EVENT DATE: 20170116
